FAERS Safety Report 15593117 (Version 1)
Quarter: 2018Q4

REPORT INFORMATION
  Report Type: Spontaneous
  Country: AU (occurrence: AU)
  Receive Date: 20181107
  Receipt Date: 20181107
  Transmission Date: 20190205
  Serious: Yes (Hospitalization)
  Sender: FDA-Public Use
  Company Number: AU-FERRINGPH-2018FE03501

PATIENT

DRUGS (7)
  1. PRAVASTATIN. [Concomitant]
     Active Substance: PRAVASTATIN
     Indication: HYPERCHOLESTEROLAEMIA
     Dosage: 40 MG, DAILY
     Route: 048
  2. DUTASTERIDE;TAMSULOSIN [Concomitant]
     Indication: PROSTATIC OBSTRUCTION
     Dosage: 500 ?G, UNK
     Route: 048
  3. PERINDOPRIL [Concomitant]
     Active Substance: PERINDOPRIL
     Indication: HYPERTENSION
     Dosage: 2.5 MG, DAILY
     Route: 048
  4. DUTASTERIDE;TAMSULOSIN [Concomitant]
     Dosage: 400 ?G, UNK
     Route: 048
  5. FLUOXETINE [Concomitant]
     Active Substance: FLUOXETINE HYDROCHLORIDE
     Indication: DEPRESSION
     Dosage: 20 MG, DAILY
     Route: 048
  6. NOCDURNA [Suspect]
     Active Substance: DESMOPRESSIN ACETATE
     Indication: NOCTURIA
     Dosage: 50 ?G, DAILY
     Route: 048
     Dates: start: 20180314, end: 20180321
  7. PANTOPRAZOLE [Concomitant]
     Active Substance: PANTOPRAZOLE
     Indication: GASTROOESOPHAGEAL REFLUX DISEASE
     Dosage: 20 MG, DAILY
     Route: 048

REACTIONS (4)
  - Hyponatraemia [Unknown]
  - Fall [Unknown]
  - Contraindicated product administered [Recovered/Resolved]
  - Facial bones fracture [Unknown]

NARRATIVE: CASE EVENT DATE: 20180321
